FAERS Safety Report 10165630 (Version 2)
Quarter: 2014Q2

REPORT INFORMATION
  Report Type: Spontaneous
  Country: US (occurrence: US)
  Receive Date: 20140510
  Receipt Date: 20140510
  Transmission Date: 20141212
  Serious: No
  Sender: FDA-Public Use
  Company Number: US-BRISTOL-MYERS SQUIBB COMPANY-19874486

PATIENT
  Age: 53 Year
  Sex: Male
  Weight: 79.36 kg

DRUGS (9)
  1. BYDUREON [Suspect]
     Indication: TYPE 2 DIABETES MELLITUS
     Dosage: LOT# 73505, 73776 ; EXP:JUN16
     Route: 058
     Dates: start: 2013
  2. GABAPENTIN [Concomitant]
  3. TRAMADOL [Concomitant]
  4. ASPIRIN [Concomitant]
  5. GLIPIZIDE [Concomitant]
  6. TAMSULOSIN [Concomitant]
  7. FENOFIBRATE [Concomitant]
  8. PRILOSEC [Concomitant]
  9. SIMVASTATIN [Concomitant]

REACTIONS (7)
  - Injection site haemorrhage [Unknown]
  - Weight decreased [Unknown]
  - Injection site urticaria [Unknown]
  - Injection site pain [Unknown]
  - Injection site nodule [Not Recovered/Not Resolved]
  - Decreased appetite [Recovered/Resolved]
  - Underdose [Unknown]
